FAERS Safety Report 7786444-9 (Version None)
Quarter: 2011Q3

REPORT INFORMATION
  Report Type: 
  Country: None (occurrence: None)
  Receive Date: 20110929
  Receipt Date: 20110929
  Transmission Date: 20111222
  Serious: Yes (Other)
  Sender: FDA-Public Use
  Company Number: US-JNJFOC-20110909553

PATIENT
  Sex: Male

DRUGS (7)
  1. UNKNOWN MEDICATION [Concomitant]
     Dosage: 1 PER DAY
     Route: 048
     Dates: start: 20101001
  2. TRAMADOL [Concomitant]
     Indication: PAIN
     Route: 048
     Dates: start: 20110915
  3. NUCYNTA [Suspect]
     Indication: INTERVERTEBRAL DISC PROTRUSION
     Dosage: 3 TIMES PER DAY
     Route: 048
     Dates: start: 20110801, end: 20110915
  4. NUCYNTA [Suspect]
     Dosage: 4 TIMES PER DAY
     Route: 048
     Dates: start: 20101001, end: 20110801
  5. GABAPENTIN [Concomitant]
     Indication: HYPOAESTHESIA
     Dosage: 6 PILLS A DAY
     Route: 065
     Dates: start: 20101001
  6. UNKNOWN MEDICATION [Concomitant]
     Indication: PAIN
     Dosage: TWICE
     Route: 065
     Dates: start: 20101001
  7. PHENTERMINE [Suspect]
     Indication: WEIGHT DECREASED
     Route: 048
     Dates: start: 20110101

REACTIONS (5)
  - ANAL HAEMORRHAGE [None]
  - MALAISE [None]
  - DYSSTASIA [None]
  - FEELING ABNORMAL [None]
  - HYPERHIDROSIS [None]
